FAERS Safety Report 9632133 (Version 1)
Quarter: 2013Q4

REPORT INFORMATION
  Report Type: Report from Study
  Country: US (occurrence: US)
  Receive Date: 20131018
  Receipt Date: 20131018
  Transmission Date: 20140711
  Serious: Yes (Other)
  Sender: FDA-Public Use
  Company Number: US-PFIZER INC-2013297649

PATIENT
  Age: 59 Year
  Sex: Male

DRUGS (1)
  1. FLUOROURACIL [Suspect]
     Indication: RECTAL CANCER
     Dosage: 20 MG/KG, WEEKLY
     Route: 042

REACTIONS (3)
  - Cardiotoxicity [Unknown]
  - Ventricular tachycardia [Unknown]
  - Cardiac arrest [Unknown]
